FAERS Safety Report 9285236 (Version 1)
Quarter: 2013Q2

REPORT INFORMATION
  Report Type: Spontaneous
  Country: GB (occurrence: GB)
  Receive Date: 20130513
  Receipt Date: 20130513
  Transmission Date: 20140414
  Serious: Yes (Hospitalization)
  Sender: FDA-Public Use
  Company Number: GB-SUN PHARMACEUTICAL INDUSTRIES LTD-2013SUN00573

PATIENT
  Age: 73 Year
  Sex: Female

DRUGS (3)
  1. OXALIPLATIN RTU SOLUTION [Suspect]
     Indication: COLON CANCER
     Route: 065
  2. OXALIPLATIN RTU SOLUTION [Suspect]
     Indication: METASTATIC NEOPLASM
  3. FLUOROURACIL [Suspect]
     Indication: COLON CANCER
     Dosage: UNK

REACTIONS (1)
  - Posterior reversible encephalopathy syndrome [Recovered/Resolved]
